FAERS Safety Report 16349677 (Version 1)
Quarter: 2019Q2

REPORT INFORMATION
  Report Type: Spontaneous
  Country: US (occurrence: US)
  Receive Date: 20190523
  Receipt Date: 20190523
  Transmission Date: 20190711
  Serious: No
  Sender: FDA-Public Use
  Company Number: US-ASCEND THERAPEUTICS-2067384

PATIENT
  Age: 62 Year
  Sex: Female

DRUGS (5)
  1. PROGESTERONE. [Suspect]
     Active Substance: PROGESTERONE
     Dates: start: 2004
  2. CLONIDINE?INDICATIONS USED FOR NIGHTMARE EPISODES FOR 5 YEARS [Concomitant]
  3. LORAZEPAM. [Concomitant]
     Active Substance: LORAZEPAM
     Dates: start: 2002
  4. LAMICTAL [Concomitant]
     Active Substance: LAMOTRIGINE
     Dates: start: 2002
  5. ESTROGEL [Suspect]
     Active Substance: ESTRADIOL
     Indication: PREMATURE MENOPAUSE
     Route: 062
     Dates: start: 2004

REACTIONS (1)
  - Off label use [None]
